FAERS Safety Report 4664496-2 (Version None)
Quarter: 2005Q2

REPORT INFORMATION
  Report Type: 
  Country: None (occurrence: None)
  Receive Date: 20050518
  Receipt Date: 20050511
  Transmission Date: 20051028
  Serious: Yes (Life-Threatening, Other)
  Sender: FDA-Public Use
  Company Number: 200514260GDDC

PATIENT
  Age: 74 Year
  Sex: Female
  Weight: 68 kg

DRUGS (10)
  1. CLEXANE [Suspect]
     Indication: CEREBROVASCULAR DISORDER
     Route: 058
     Dates: start: 20040315, end: 20040323
  2. TRITACE [Suspect]
     Indication: CARDIAC FAILURE CONGESTIVE
     Route: 048
  3. WARFARIN [Suspect]
     Indication: CEREBROVASCULAR DISORDER
     Route: 048
  4. SPIRONOLACTONE [Suspect]
     Indication: CARDIAC FAILURE CONGESTIVE
     Route: 048
     Dates: end: 20040324
  5. MOBIC [Suspect]
     Route: 048
     Dates: end: 20040315
  6. ASPIRIN [Suspect]
     Indication: MYOCARDIAL ISCHAEMIA
     Route: 048
  7. QUINATE [Concomitant]
     Indication: PAIN IN EXTREMITY
     Route: 048
  8. IMDUR [Concomitant]
     Indication: MYOCARDIAL ISCHAEMIA
     Route: 048
  9. NICORANDIL [Concomitant]
     Indication: MYOCARDIAL ISCHAEMIA
     Route: 048
  10. AMOXICILLIN TRIHYDRATE [Concomitant]
     Dates: start: 20040315, end: 20040324

REACTIONS (5)
  - ABDOMINAL HAEMATOMA [None]
  - CONTUSION [None]
  - HAEMATOMA [None]
  - HYPERKALAEMIA [None]
  - RENAL IMPAIRMENT [None]
